FAERS Safety Report 10439830 (Version 1)
Quarter: 2014Q3

REPORT INFORMATION
  Report Type: Spontaneous
  Country: US (occurrence: US)
  Receive Date: 20140908
  Receipt Date: 20140908
  Transmission Date: 20150326
  Serious: No
  Sender: FDA-Public Use
  Company Number: US-BRISTOL-MYERS SQUIBB COMPANY-20035549

PATIENT
  Age: 44 Year
  Sex: Male

DRUGS (4)
  1. LORTAB [Concomitant]
     Active Substance: ACETAMINOPHEN\HYDROCODONE BITARTRATE
  2. EFFEXOR [Concomitant]
     Active Substance: VENLAFAXINE HYDROCHLORIDE
  3. XANAX [Concomitant]
     Active Substance: ALPRAZOLAM
  4. ABILIFY [Suspect]
     Active Substance: ARIPIPRAZOLE
     Dosage: STARTING DOSE WAS 20MG
     Dates: start: 2013

REACTIONS (1)
  - Tardive dyskinesia [Unknown]
